FAERS Safety Report 21158785 (Version 6)
Quarter: 2024Q4

REPORT INFORMATION
  Report Type: Spontaneous
  Country: US (occurrence: US)
  Receive Date: 20220802
  Receipt Date: 20241030
  Transmission Date: 20250115
  Serious: Yes (Hospitalization)
  Sender: UNITED THERAPEUTICS
  Company Number: US-UNITED THERAPEUTICS-UNT-2022-016087

PATIENT
  Sex: Male
  Weight: 79.365 kg

DRUGS (5)
  1. REMODULIN [Suspect]
     Active Substance: TREPROSTINIL
     Indication: Pulmonary arterial hypertension
     Dosage: UNK, CONTINUING
  2. REMODULIN [Suspect]
     Active Substance: TREPROSTINIL
     Dosage: 0.058 ?G/KG (PRE-FILLED WITH 2.8 ML PER CASSETTE; AT PUMP RATE OF 29 MCL/HR), CONTINUING
  3. REMODULIN [Suspect]
     Active Substance: TREPROSTINIL
     Dosage: 0.060 ?G/KG (PRE-FILLED WITH 2.8 ML PER CASSETTE; AT PUMP RATE OF 30 MCL/HR), CONTINUING
  4. AMBRISENTAN [Concomitant]
     Active Substance: AMBRISENTAN
     Indication: Product used for unknown indication
     Dosage: UNK
  5. ADCIRCA [Concomitant]
     Active Substance: TADALAFIL
     Indication: Pulmonary arterial hypertension
     Dosage: UNK

REACTIONS (8)
  - Infusion site infection [Unknown]
  - Infusion site pain [Unknown]
  - Somnolence [Unknown]
  - Device difficult to use [Unknown]
  - Device issue [Unknown]
  - Drug dose titration not performed [Unknown]
  - Device occlusion [Unknown]
  - Device leakage [Unknown]
